FAERS Safety Report 20633400 (Version 1)
Quarter: 2022Q1

REPORT INFORMATION
  Report Type: Spontaneous
  Country: US (occurrence: US)
  Receive Date: 20220324
  Receipt Date: 20220324
  Transmission Date: 20220423
  Serious: No
  Sender: FDA-Public Use
  Company Number: US-MYLANLABS-2022M1020153

PATIENT
  Sex: Female

DRUGS (1)
  1. ESTRADIOL [Suspect]
     Active Substance: ESTRADIOL
     Indication: Product used for unknown indication
     Dosage: UNK , QD (ONCE-WEEKLY)
     Route: 062

REACTIONS (5)
  - Product adhesion issue [Unknown]
  - Product quality issue [Unknown]
  - Stress [Unknown]
  - Product substitution issue [Unknown]
  - Product dose omission issue [Unknown]
